FAERS Safety Report 15478615 (Version 1)
Quarter: 2018Q4

REPORT INFORMATION
  Report Type: Spontaneous
  Country: US (occurrence: US)
  Receive Date: 20181009
  Receipt Date: 20181009
  Transmission Date: 20190205
  Serious: No
  Sender: FDA-Public Use
  Company Number: US-ENDO PHARMACEUTICALS INC-2017-005380

PATIENT
  Sex: Female

DRUGS (1)
  1. BACLOFEN TABLETS 10MG [Suspect]
     Active Substance: BACLOFEN
     Indication: PRODUCT USED FOR UNKNOWN INDICATION
     Dosage: UNK UNK, UNKNOWN
     Route: 065

REACTIONS (4)
  - Adverse event [Unknown]
  - Product measured potency issue [Unknown]
  - Somnolence [Unknown]
  - Wrong technique in product usage process [Unknown]
